FAERS Safety Report 7328548-0 (Version None)
Quarter: 2011Q1

REPORT INFORMATION
  Report Type: 
  Country: None (occurrence: None)
  Receive Date: 20110225
  Receipt Date: 20110225
  Transmission Date: 20110831
  Serious: No
  Sender: FDA-Public Use
  Company Number: None

PATIENT
  Age: 51 Year
  Sex: Female
  Weight: 93.8039 kg

DRUGS (15)
  1. TRICOR [Concomitant]
  2. BETASERON [Suspect]
     Indication: MULTIPLE SCLEROSIS
     Dosage: 0.3 MG THREE TIMES WEEKLY SQ
     Dates: start: 20090331, end: 20100211
  3. CALCIUM CITRATE [Concomitant]
  4. APAP TAB [Concomitant]
  5. FLONASE [Concomitant]
  6. FUROSEMIDE [Concomitant]
  7. PREVACID [Concomitant]
  8. ASPIRIN [Concomitant]
  9. LOVAZA [Concomitant]
  10. DIOVAN HCT [Concomitant]
  11. NIASPAN [Concomitant]
  12. CITALOPRAM HYDROBROMIDE [Concomitant]
  13. COREG [Concomitant]
  14. SIMVASTATIN [Concomitant]
  15. ZYRTEC [Concomitant]

REACTIONS (1)
  - ATRIAL FIBRILLATION [None]
